FAERS Safety Report 8560232-8 (Version None)
Quarter: 2012Q3

REPORT INFORMATION
  Report Type: 
  Country: None (occurrence: None)
  Receive Date: 20120802
  Receipt Date: 20120727
  Transmission Date: 20120928
  Serious: Yes (Other)
  Sender: FDA-Public Use
  Company Number: FR-ROCHE-1058622

PATIENT
  Sex: Female
  Weight: 82 kg

DRUGS (8)
  1. LEVOTHYROXINE SODIUM [Concomitant]
  2. PROZAC [Concomitant]
  3. XOLAIR [Suspect]
     Indication: ASTHMA
     Dates: start: 20100401, end: 20111115
  4. XOLAIR [Suspect]
     Dates: start: 20111018, end: 20120301
  5. PREDNISOLONE [Concomitant]
  6. LASIX [Concomitant]
  7. INNOVAR [Concomitant]
     Dates: start: 20100101
  8. VENTOLIN [Concomitant]

REACTIONS (5)
  - INJECTION SITE SWELLING [None]
  - HYPERSENSITIVITY [None]
  - GENERALISED ERYTHEMA [None]
  - PHARYNGEAL OEDEMA [None]
  - URTICARIA [None]
